FAERS Safety Report 9023381 (Version 1)
Quarter: 2013Q1

REPORT INFORMATION
  Report Type: Spontaneous
  Country: DO (occurrence: US)
  Receive Date: 20130121
  Receipt Date: 20130121
  Transmission Date: 20140127
  Serious: No
  Sender: FDA-Public Use
  Company Number: US-B.I. PHARMACEUTICALS,INC./RIDGEFIELD-2013-BI-00899BP

PATIENT
  Age: 67 None
  Sex: Male
  Weight: 86 kg

DRUGS (3)
  1. MICARDIS [Suspect]
     Indication: HYPERTENSION
     Dosage: 40 MG
     Route: 048
     Dates: start: 2010, end: 2011
  2. MICARDIS [Suspect]
     Dosage: 80 MG
     Route: 048
     Dates: start: 2011
  3. MUSCLE RELAXANTS [Concomitant]
     Indication: BACK PAIN

REACTIONS (7)
  - Blood pressure inadequately controlled [Not Recovered/Not Resolved]
  - Road traffic accident [Recovered/Resolved]
  - Fall [Recovered/Resolved]
  - Lower respiratory tract infection [Not Recovered/Not Resolved]
  - Back pain [Not Recovered/Not Resolved]
  - Blood pressure inadequately controlled [Recovered/Resolved]
  - Adverse drug reaction [Recovered/Resolved]
